FAERS Safety Report 7516925-4 (Version None)
Quarter: 2011Q2

REPORT INFORMATION
  Report Type: 
  Country: None (occurrence: None)
  Receive Date: 20110526
  Receipt Date: 20110526
  Transmission Date: 20111010
  Serious: Yes (Life-Threatening, Other)
  Sender: FDA-Public Use
  Company Number: None

PATIENT
  Sex: Male
  Weight: 81.1939 kg

DRUGS (3)
  1. PANTOPRAZOLE [Suspect]
     Indication: THERMAL BURN
     Dosage: 40MG 2 TIMES A DAY
     Dates: start: 20110406, end: 20110524
  2. PANTOPRAZOLE [Suspect]
     Indication: ABDOMINAL PAIN UPPER
     Dosage: 40MG 2 TIMES A DAY
     Dates: start: 20110406, end: 20110524
  3. PANTOPRAZOLE [Suspect]
     Indication: GASTROOESOPHAGEAL REFLUX DISEASE
     Dosage: 40MG 2 TIMES A DAY
     Dates: start: 20110406, end: 20110524

REACTIONS (10)
  - ABDOMINAL DISCOMFORT [None]
  - CHEST PAIN [None]
  - DRUG WITHDRAWAL SYNDROME [None]
  - HYPOAESTHESIA [None]
  - MIDDLE INSOMNIA [None]
  - ABDOMINAL PAIN [None]
  - FEELING JITTERY [None]
  - NIGHTMARE [None]
  - HEART RATE INCREASED [None]
  - NOCTURNAL DYSPNOEA [None]
